FAERS Safety Report 5871312-X (Version None)
Quarter: 2008Q3

REPORT INFORMATION
  Report Type: 
  Country: None (occurrence: None)
  Receive Date: 20080905
  Receipt Date: 20080901
  Transmission Date: 20090109
  Serious: Yes (Hospitalization)
  Sender: FDA-Public Use
  Company Number: JP-BRISTOL-MYERS SQUIBB COMPANY-14323356

PATIENT
  Age: 50 Year
  Sex: Male

DRUGS (6)
  1. REYATAZ [Suspect]
     Indication: HIV INFECTION
     Dosage: STOPPED ON 04-JUL-2007 AND STARTED AGAIN ON 2AUG2007-6AUG2007
     Route: 048
     Dates: start: 20060112
  2. NORVIR [Suspect]
     Indication: HIV INFECTION
     Dosage: STOPPED ON 04-JUL-2007 AND STARTED AGAIN ON 2AUG2007-06AUG2007: PO 7AUG2007 - UNKNOWN
     Route: 048
     Dates: start: 20060112
  3. EPZICOM [Suspect]
     Indication: HIV INFECTION
     Dosage: STOPPED FROM 04-JUL-2007 AND STARTED ON 02AUG2007-UNKNOWN
     Route: 048
     Dates: start: 20060112
  4. COMELIAN [Concomitant]
     Route: 048
     Dates: start: 20060112, end: 20070704
  5. AMOBAN [Concomitant]
     Route: 048
     Dates: start: 20050926, end: 20070704
  6. TANATRIL [Concomitant]
     Route: 048
     Dates: start: 20060629, end: 20070704

REACTIONS (2)
  - CHOLELITHIASIS [None]
  - PANCREATITIS ACUTE [None]
